FAERS Safety Report 12762325 (Version 2)
Quarter: 2017Q1

REPORT INFORMATION
  Report Type: Report from Study
  Country: US (occurrence: US)
  Receive Date: 20160920
  Receipt Date: 20170124
  Transmission Date: 20170428
  Serious: Yes (Other)
  Sender: FDA-Public Use
  Company Number: US-GLAXOSMITHKLINE-US2016GSK135201

PATIENT
  Sex: Female
  Weight: 90.25 kg

DRUGS (1)
  1. BELIMUMAB [Suspect]
     Active Substance: BELIMUMAB
     Indication: SYSTEMIC LUPUS ERYTHEMATOSUS
     Dosage: UNK
     Route: 042
     Dates: start: 20160209, end: 20160323

REACTIONS (6)
  - Pharyngeal oedema [Unknown]
  - Systemic lupus erythematosus [Unknown]
  - Adverse drug reaction [Unknown]
  - Eye swelling [Unknown]
  - Flushing [Unknown]
  - Nausea [Unknown]
